FAERS Safety Report 5237709-6 (Version None)
Quarter: 2007Q1

REPORT INFORMATION
  Report Type: 
  Country: None (occurrence: None)
  Receive Date: 20070214
  Receipt Date: 20070209
  Transmission Date: 20070707
  Serious: Yes (Death)
  Sender: FDA-Public Use
  Company Number: US-ROCHE-482036

PATIENT
  Sex: Male

DRUGS (1)
  1. BONIVA [Suspect]
     Indication: OSTEOPOROSIS
     Dosage: PATIENT TOOK MONTHLY IBANDRONIC ACID.
     Route: 065
     Dates: end: 20061001

REACTIONS (1)
  - CARDIAC FAILURE CONGESTIVE [None]
